FAERS Safety Report 11814721 (Version 2)
Quarter: 2015Q4

REPORT INFORMATION
  Report Type: Spontaneous
  Country: US (occurrence: US)
  Receive Date: 20151209
  Receipt Date: 20151210
  Transmission Date: 20160305
  Serious: Yes (Life-Threatening)
  Sender: FDA-Public Use
  Company Number: US-TAIHO ONCOLOGY INC-EU-2015-00304

PATIENT
  Sex: Female
  Weight: 53.12 kg

DRUGS (1)
  1. LONSURF [Suspect]
     Active Substance: TIPIRACIL HYDROCHLORIDE\TRIFLURIDINE
     Indication: COLORECTAL CANCER
     Dosage: CURRENT CYCLE 1
     Route: 048
     Dates: start: 20151116

REACTIONS (1)
  - Metastases to vagina [Not Recovered/Not Resolved]
